FAERS Safety Report 25551139 (Version 5)
Quarter: 2025Q3

REPORT INFORMATION
  Report Type: Report from Study
  Country: AR (occurrence: AR)
  Receive Date: 20250714
  Receipt Date: 20250909
  Transmission Date: 20251020
  Serious: Yes (Hospitalization, Other)
  Sender: TAKEDA
  Company Number: AR-TAKEDA-2025TUS057862

PATIENT
  Age: 83 Year
  Sex: Female

DRUGS (4)
  1. TEDUGLUTIDE [Suspect]
     Active Substance: TEDUGLUTIDE
     Indication: Short-bowel syndrome
     Dosage: 0.3 MILLILITER, QD
  2. TEDUGLUTIDE [Suspect]
     Active Substance: TEDUGLUTIDE
     Dosage: UNK, UNK, QD
  3. TEDUGLUTIDE [Suspect]
     Active Substance: TEDUGLUTIDE
  4. TEDUGLUTIDE [Suspect]
     Active Substance: TEDUGLUTIDE

REACTIONS (7)
  - Stoma site haemorrhage [Recovered/Resolved]
  - Stoma site thrombosis [Recovered/Resolved]
  - Pneumonia [Recovering/Resolving]
  - Swelling face [Recovered/Resolved]
  - Mouth swelling [Recovered/Resolved]
  - Stoma site inflammation [Recovered/Resolved]
  - Stoma site induration [Recovered/Resolved]

NARRATIVE: CASE EVENT DATE: 20250512
